FAERS Safety Report 7474268-1 (Version None)
Quarter: 2011Q2

REPORT INFORMATION
  Report Type: 
  Country: None (occurrence: None)
  Receive Date: 20110511
  Receipt Date: 20100323
  Transmission Date: 20111010
  Serious: Yes (Other)
  Sender: FDA-Public Use
  Company Number: DE-GENENTECH-318400

PATIENT
  Age: 91 Year
  Sex: Male

DRUGS (1)
  1. LUCENTIS [Suspect]
     Indication: AGE-RELATED MACULAR DEGENERATION
     Dosage: UNK
     Route: 031
     Dates: start: 20091229

REACTIONS (5)
  - CATARACT [None]
  - ACCIDENT [None]
  - VISUAL ACUITY REDUCED [None]
  - VISION BLURRED [None]
  - EYE INJURY [None]
